FAERS Safety Report 4471843-3 (Version None)
Quarter: 2004Q4

REPORT INFORMATION
  Report Type: 
  Country: None (occurrence: None)
  Receive Date: 20041006
  Receipt Date: 20040924
  Transmission Date: 20050328
  Serious: Yes (Hospitalization, Other)
  Sender: FDA-Public Use
  Company Number: 2004045267

PATIENT
  Age: 19 Year
  Sex: Male

DRUGS (3)
  1. VIAGRA [Suspect]
     Indication: ILL-DEFINED DISORDER
     Dosage: 100 MG (100 MG,AS NEEDED),ORAL
     Route: 048
  2. BECLOMETHASONE DIPROPIONATE (BECLOMETHASONE DIPROPIONATE) [Concomitant]
  3. SASLBUTAMOL (SALBUTAMOL) [Concomitant]

REACTIONS (3)
  - DRUG INEFFECTIVE [None]
  - PRIAPISM [None]
  - SELF-MEDICATION [None]
